FAERS Safety Report 23710568 (Version 1)
Quarter: 2024Q2

REPORT INFORMATION
  Report Type: Spontaneous
  Country: US (occurrence: US)
  Receive Date: 20240405
  Receipt Date: 20240405
  Transmission Date: 20240716
  Serious: No
  Sender: FDA-Public Use
  Company Number: US-MELINTA THERAPEUTICS, LLC-US-MLNT-24-00092

PATIENT
  Age: 78 Year
  Sex: Female

DRUGS (3)
  1. KIMYRSA [Suspect]
     Active Substance: ORITAVANCIN DIPHOSPHATE
     Indication: Product used for unknown indication
     Dosage: UNK
     Route: 041
     Dates: start: 20240208, end: 20240208
  2. KIMYRSA [Suspect]
     Active Substance: ORITAVANCIN DIPHOSPHATE
     Dosage: UNK
     Route: 041
     Dates: start: 20240222, end: 20240222
  3. BENADRYL [Suspect]
     Active Substance: DIPHENHYDRAMINE HYDROCHLORIDE
     Indication: Premedication
     Dosage: 25 MILLIGRAM
     Dates: start: 20240222, end: 20240222

REACTIONS (7)
  - Vision blurred [Unknown]
  - Hypopnoea [Unknown]
  - Tinnitus [Unknown]
  - Dizziness [Unknown]
  - Feeling abnormal [Unknown]
  - Flushing [Unknown]
  - Multiple use of single-use product [Unknown]

NARRATIVE: CASE EVENT DATE: 20240222
